FAERS Safety Report 21251140 (Version 1)
Quarter: 2022Q3

REPORT INFORMATION
  Report Type: Spontaneous
  Country: US (occurrence: US)
  Receive Date: 20220824
  Receipt Date: 20220824
  Transmission Date: 20221027
  Serious: Yes (Hospitalization, Other)
  Sender: FDA-Public Use
  Company Number: US-MALLINCKRODT-T202204155

PATIENT
  Sex: Female

DRUGS (2)
  1. H.P. ACTHAR [Suspect]
     Active Substance: CORTICOTROPIN
     Indication: Rheumatoid nodule
     Dosage: 1 MILLILITER (80 UNITS), BIW (TWO TIMES A WEEK)
     Route: 058
     Dates: start: 202203
  2. RINVOQ [Concomitant]
     Active Substance: UPADACITINIB
     Indication: Product used for unknown indication
     Dosage: UNK
     Route: 065

REACTIONS (3)
  - Spinal disorder [Unknown]
  - Hypotension [Unknown]
  - Contusion [Unknown]

NARRATIVE: CASE EVENT DATE: 20220101
